FAERS Safety Report 8880283 (Version 1)
Quarter: 2012Q4

REPORT INFORMATION
  Report Type: 
  Country: US (occurrence: US)
  Receive Date: 20121101
  Receipt Date: 20121101
  Transmission Date: 20130627
  Serious: Yes (Other)
  Sender: FDA-Public Use
  Company Number: US-PFIZER INC-2012269139

PATIENT
  Age: 48 Year
  Sex: Female
  Weight: 52.15 kg

DRUGS (9)
  1. LYRICA [Suspect]
     Indication: FIBROMYALGIA
     Dosage: UNK
  2. LYRICA [Suspect]
     Dosage: 225 mg, 2x/day
  3. XANAX [Suspect]
     Indication: ANXIETY
     Dosage: 0.5 mg, as needed
  4. XANAX [Suspect]
     Indication: POST-TRAUMATIC STRESS DISORDER
  5. OXYCODONE HYDROCHLORIDE [Suspect]
     Indication: PAIN
     Dosage: 15 mg, as needed
  6. CONCERTA [Suspect]
     Indication: ATTENTION DEFICIT DISORDER
     Dosage: 36.5 mg, daily
     Dates: start: 201203
  7. HYDROCODONE [Suspect]
     Indication: PAIN
     Dosage: UNK, every 4 hours
  8. PROMETHAZINE HYDROCHLORIDE [Suspect]
     Indication: NAUSEA
     Dosage: 25 mg, every 4 hrs
  9. MILK THISTLE [Concomitant]
     Indication: LIVER DISORDER
     Dosage: 1000 mg, daily

REACTIONS (1)
  - Obsessive-compulsive disorder [Unknown]
